FAERS Safety Report 21480554 (Version 1)
Quarter: 2022Q4

REPORT INFORMATION
  Report Type: Spontaneous
  Country: US (occurrence: None)
  Receive Date: 20221019
  Receipt Date: 20221019
  Transmission Date: 20230113
  Serious: Yes (Life-Threatening)
  Sender: FDA-Public Use
  Company Number: None

PATIENT
  Age: 44 Year
  Sex: Female
  Weight: 76.5 kg

DRUGS (11)
  1. DEFINITY [Suspect]
     Active Substance: PERFLUTREN
     Indication: Cardiac stress test
     Dates: start: 20221010, end: 20221010
  2. Decom G6 Crestor [Concomitant]
  3. LANTUS [Concomitant]
     Active Substance: INSULIN GLARGINE
  4. AMARYL [Concomitant]
     Active Substance: GLIMEPIRIDE
  5. ACTOS [Concomitant]
     Active Substance: PIOGLITAZONE HYDROCHLORIDE
  6. PROZAC [Concomitant]
     Active Substance: FLUOXETINE HYDROCHLORIDE
  7. VITAMIN D3 [Concomitant]
     Active Substance: CHOLECALCIFEROL
  8. VITAMINS [Concomitant]
     Active Substance: VITAMINS
  9. MAGOX [Concomitant]
  10. FISH OIL [Concomitant]
     Active Substance: FISH OIL
  11. SACCHAROMYCES CEREVISIAE [Concomitant]
     Active Substance: SACCHAROMYCES CEREVISIAE

REACTIONS (25)
  - Dizziness postural [None]
  - Feeling abnormal [None]
  - Nausea [None]
  - Chest pain [None]
  - Dyspnoea [None]
  - Paraesthesia [None]
  - Hypoaesthesia [None]
  - Hypoaesthesia oral [None]
  - Paraesthesia oral [None]
  - Hypoaesthesia [None]
  - Paraesthesia [None]
  - Hypoaesthesia oral [None]
  - Paraesthesia oral [None]
  - Cough [None]
  - Dry mouth [None]
  - Throat tightness [None]
  - Headache [None]
  - Hypertension [None]
  - Heart rate increased [None]
  - Rash [None]
  - Erythema [None]
  - Lip swelling [None]
  - Anxiety [None]
  - Mouth swelling [None]
  - Pruritus [None]

NARRATIVE: CASE EVENT DATE: 20221010
